FAERS Safety Report 4953432-7 (Version None)
Quarter: 2006Q1

REPORT INFORMATION
  Report Type: 
  Country: None (occurrence: None)
  Receive Date: 20060324
  Receipt Date: 20060315
  Transmission Date: 20060701
  Serious: Yes (Hospitalization)
  Sender: FDA-Public Use
  Company Number: CA-ABBOTT-06P-028-0328379-00

PATIENT
  Age: 14 Year
  Sex: Male

DRUGS (1)
  1. BIAXIN [Suspect]
     Indication: LUNG INFECTION
     Route: 048
     Dates: start: 20060104, end: 20060110

REACTIONS (5)
  - ABDOMINAL PAIN UPPER [None]
  - ABDOMINAL RIGIDITY [None]
  - GASTROOESOPHAGEAL REFLUX DISEASE [None]
  - HEADACHE [None]
  - MUSCLE TWITCHING [None]
